FAERS Safety Report 18615019 (Version 1)
Quarter: 2020Q4

REPORT INFORMATION
  Report Type: Spontaneous
  Country: US (occurrence: US)
  Receive Date: 20201215
  Receipt Date: 20201215
  Transmission Date: 20210114
  Serious: Yes (Other)
  Sender: FDA-Public Use
  Company Number: US-PFIZER INC-2020490248

PATIENT
  Age: 54 Year
  Sex: Female

DRUGS (1)
  1. SERTRALINE HCL [Suspect]
     Active Substance: SERTRALINE HYDROCHLORIDE
     Dosage: UNK

REACTIONS (9)
  - Agitation [Unknown]
  - Depression [Unknown]
  - Memory impairment [Unknown]
  - Bipolar disorder [Unknown]
  - Feeling abnormal [Unknown]
  - Psychomotor hyperactivity [Unknown]
  - Cognitive disorder [Unknown]
  - Post-traumatic stress disorder [Unknown]
  - Anxiety [Unknown]
